FAERS Safety Report 5464643-9 (Version None)
Quarter: 2007Q3

REPORT INFORMATION
  Report Type: 
  Country: None (occurrence: None)
  Receive Date: 20070921
  Receipt Date: 20070912
  Transmission Date: 20080115
  Serious: Yes (Other)
  Sender: FDA-Public Use
  Company Number: GB-PFIZER INC-2007077840

PATIENT
  Sex: Male

DRUGS (1)
  1. NICOTINE NASAL SPRAY [Suspect]
     Indication: SMOKING CESSATION THERAPY
     Route: 045

REACTIONS (3)
  - INCORRECT DRUG ADMINISTRATION DURATION [None]
  - NICOTINE DEPENDENCE [None]
  - OVERDOSE [None]
